FAERS Safety Report 6611048-0 (Version None)
Quarter: 2010Q1

REPORT INFORMATION
  Report Type: 
  Country: None (occurrence: None)
  Receive Date: 20100303
  Receipt Date: 20100217
  Transmission Date: 20100710
  Serious: Yes (Death)
  Sender: FDA-Public Use
  Company Number: DE-RANBAXY-2010RR-31469

PATIENT
  Age: 76 Year
  Sex: Female

DRUGS (3)
  1. RANITIDINE [Suspect]
     Dosage: UNK
     Dates: start: 19900829, end: 19900911
  2. EPRAZINONE [Suspect]
  3. METHOTREXATE [Suspect]

REACTIONS (5)
  - CARDIAC FAILURE [None]
  - CIRCULATORY COLLAPSE [None]
  - PYREXIA [None]
  - RESPIRATORY FAILURE [None]
  - TOXIC EPIDERMAL NECROLYSIS [None]
